FAERS Safety Report 5255878-9 (Version None)
Quarter: 2007Q1

REPORT INFORMATION
  Report Type: 
  Country: None (occurrence: None)
  Receive Date: 20070301
  Receipt Date: 20070212
  Transmission Date: 20070707
  Serious: Yes (Other)
  Sender: FDA-Public Use
  Company Number: IMP_2710_2007

PATIENT
  Age: 23 Year
  Sex: Female
  Weight: 58.9676 kg

DRUGS (4)
  1. BUDEPRION [Suspect]
     Indication: DEPRESSION
     Dosage: 300 MG QDAY PO
     Route: 048
     Dates: start: 20070101, end: 20070131
  2. ZOLOFT [Suspect]
     Indication: MERYCISM
     Dosage: 12.5 MG QDAY PO
     Route: 048
     Dates: end: 20070131
  3. WELLBUTRIN XL [Suspect]
     Indication: DEPRESSION
     Dosage: 450 MG QDAY PO
     Route: 048
     Dates: start: 20060201, end: 20070101
  4. WELLBUTRIN XL [Suspect]
     Indication: DEPRESSION
     Dosage: 300 MG QDAY PO
     Route: 048
     Dates: start: 20050701, end: 20060201

REACTIONS (8)
  - CONTUSION [None]
  - FALL [None]
  - GRAND MAL CONVULSION [None]
  - HEAD INJURY [None]
  - INSOMNIA [None]
  - PHARMACEUTICAL PRODUCT COMPLAINT [None]
  - POSTICTAL STATE [None]
  - TONGUE BITING [None]
